FAERS Safety Report 4925072-7 (Version None)
Quarter: 2006Q1

REPORT INFORMATION
  Report Type: 
  Country: None (occurrence: None)
  Receive Date: 20060222
  Receipt Date: 20060210
  Transmission Date: 20060701
  Serious: Yes (Other)
  Sender: FDA-Public Use
  Company Number: 2005132850

PATIENT
  Sex: Male
  Weight: 86.1834 kg

DRUGS (12)
  1. LYRICA [Suspect]
     Indication: COMPLEX REGIONAL PAIN SYNDROME
     Dosage: 400 MG (200 MG 2 IN 1 D) ORAL
     Route: 048
     Dates: start: 20050916, end: 20050921
  2. NEURONTIN [Suspect]
     Indication: PAIN
     Dosage: 300 MG (100 MG 3 IN 1D )ORAL
     Route: 048
     Dates: start: 19990101, end: 19990101
  3. ALPRAZOLAM [Suspect]
     Indication: PANIC ATTACK
  4. IBUPROFEN [Suspect]
     Indication: ILL-DEFINED DISORDER
  5. TRAZODONE HCL [Concomitant]
  6. MS CONTIN [Concomitant]
  7. ALPRAZOLAM [Concomitant]
  8. SOMA [Concomitant]
  9. LIDOCAINE [Concomitant]
  10. LORTAB (NYDROCODONE BITARTRATE, PARACETAMOL) [Concomitant]
  11. NIFEDIPINE [Concomitant]
  12. ALL OTHER NON THERAPEUTIC PRODUCTS [Concomitant]

REACTIONS (28)
  - ABNORMAL DREAMS [None]
  - AGGRESSION [None]
  - AMNESIA [None]
  - BALANCE DISORDER [None]
  - COLD SWEAT [None]
  - COMPLEX REGIONAL PAIN SYNDROME [None]
  - CONCUSSION [None]
  - DIFFICULTY IN WALKING [None]
  - DIZZINESS [None]
  - DYSPHEMIA [None]
  - FATIGUE [None]
  - FEELING ABNORMAL [None]
  - HAEMORRHAGE [None]
  - HEADACHE [None]
  - HYPERHIDROSIS [None]
  - IMPAIRED DRIVING ABILITY [None]
  - INSOMNIA [None]
  - IRRITABILITY [None]
  - MANIA [None]
  - MENTAL IMPAIRMENT [None]
  - MYDRIASIS [None]
  - PANIC ATTACK [None]
  - READING DISORDER [None]
  - ROAD TRAFFIC ACCIDENT [None]
  - SCREAMING [None]
  - SOMNOLENCE [None]
  - UMBILICAL HERNIA [None]
  - VISUAL DISTURBANCE [None]
